FAERS Safety Report 25844989 (Version 1)
Quarter: 2025Q3

REPORT INFORMATION
  Report Type: Spontaneous
  Country: CN (occurrence: CN)
  Receive Date: 20250925
  Receipt Date: 20250925
  Transmission Date: 20251020
  Serious: Yes (Life-Threatening)
  Sender: GE HEALTHCARE
  Company Number: None

PATIENT
  Age: 70 Year
  Sex: Female
  Weight: 75 kg

DRUGS (1)
  1. OMNIPAQUE [Suspect]
     Active Substance: IOHEXOL
     Indication: Computerised tomogram
     Route: 040
     Dates: start: 20250908, end: 20250908

REACTIONS (17)
  - Urinary incontinence [Recovering/Resolving]
  - Anal incontinence [Recovering/Resolving]
  - Dysphoria [Recovering/Resolving]
  - Bundle branch block left [Recovering/Resolving]
  - Cardiac failure [Recovering/Resolving]
  - Cold sweat [Recovering/Resolving]
  - Altered state of consciousness [Recovering/Resolving]
  - Unresponsive to stimuli [Recovering/Resolving]
  - Pulmonary oedema [Recovering/Resolving]
  - Respiratory arrest [Recovering/Resolving]
  - Dyspnoea [Recovering/Resolving]
  - Cyanosis [Recovering/Resolving]
  - Hyperhidrosis [Recovering/Resolving]
  - Heart rate decreased [Recovering/Resolving]
  - Supraventricular tachycardia [Recovering/Resolving]
  - Acute respiratory failure [Recovering/Resolving]
  - Contrast media allergy [Recovering/Resolving]

NARRATIVE: CASE EVENT DATE: 20250908
